FAERS Safety Report 8499716 (Version 14)
Quarter: 2016Q2

REPORT INFORMATION
  Report Type: Report from Study
  Country: CA (occurrence: CA)
  Receive Date: 20120409
  Receipt Date: 20160512
  Transmission Date: 20160815
  Serious: Yes (Hospitalization, Other)
  Sender: FDA-Public Use
  Company Number: CA-ROCHE-1053158

PATIENT
  Age: 68 Year
  Sex: Female
  Weight: 113.95 kg

DRUGS (38)
  1. ACTEMRA [Suspect]
     Active Substance: TOCILIZUMAB
     Indication: RHEUMATOID ARTHRITIS
     Dosage: DATE OF LAST DOSE OF TOCILIZUMAB: 07/JAN/2014
     Route: 042
     Dates: start: 20100825
  2. WARFARIN [Suspect]
     Active Substance: WARFARIN
     Indication: PRODUCT USED FOR UNKNOWN INDICATION
     Route: 065
     Dates: end: 201604
  3. ALLOPURINOL. [Concomitant]
     Active Substance: ALLOPURINOL
  4. ACTEMRA [Suspect]
     Active Substance: TOCILIZUMAB
     Route: 058
     Dates: start: 20150323
  5. ACTEMRA [Suspect]
     Active Substance: TOCILIZUMAB
     Route: 058
     Dates: start: 20150406
  6. NADOLOL. [Concomitant]
     Active Substance: NADOLOL
  7. ZOFRAN [Concomitant]
     Active Substance: ONDANSETRON HYDROCHLORIDE
  8. PROLIA [Concomitant]
     Active Substance: DENOSUMAB
     Dosage: LAST DOSE ON 03/DEC/2014
     Route: 065
  9. ACTEMRA [Suspect]
     Active Substance: TOCILIZUMAB
     Route: 042
     Dates: start: 20120731
  10. ACTEMRA [Suspect]
     Active Substance: TOCILIZUMAB
     Route: 058
     Dates: start: 20150302
  11. LOMOTIL (CANADA) [Concomitant]
     Dosage: DISCONTINUED
     Route: 065
  12. SPIRONOLACTONE. [Concomitant]
     Active Substance: SPIRONOLACTONE
  13. HYDROMORPHONE [Concomitant]
     Active Substance: HYDROMORPHONE
     Dosage: SUSTAINED RELEASE
     Route: 065
  14. ACTEMRA [Suspect]
     Active Substance: TOCILIZUMAB
     Route: 058
     Dates: start: 20150330
  15. FUROSEMIDE. [Concomitant]
     Active Substance: FUROSEMIDE
  16. DOXYCYCLINE. [Concomitant]
     Active Substance: DOXYCYCLINE
     Dosage: DISCONTINUED
     Route: 065
  17. DOMPERIDONE [Concomitant]
     Active Substance: DOMPERIDONE
  18. ACETAMINOPHEN. [Concomitant]
     Active Substance: ACETAMINOPHEN
  19. LASIX [Concomitant]
     Active Substance: FUROSEMIDE
  20. ACTEMRA [Suspect]
     Active Substance: TOCILIZUMAB
     Route: 042
     Dates: start: 20111114
  21. RITUXAN [Suspect]
     Active Substance: RITUXIMAB
     Indication: RHEUMATOID ARTHRITIS
     Route: 065
  22. POTASSIUM CHLORIDE. [Concomitant]
     Active Substance: POTASSIUM CHLORIDE
  23. PREDNISONE. [Concomitant]
     Active Substance: PREDNISONE
     Indication: ARTHRITIS
     Dosage: DAILY
     Route: 048
  24. TRAZODONE [Concomitant]
     Active Substance: TRAZODONE HYDROCHLORIDE
  25. ZOPICLONE [Concomitant]
     Active Substance: ZOPICLONE
  26. ASA [Concomitant]
     Active Substance: ASPIRIN
     Route: 065
  27. ACTEMRA [Suspect]
     Active Substance: TOCILIZUMAB
     Route: 058
     Dates: start: 20150316
  28. RABEPRAZOLE [Concomitant]
     Active Substance: RABEPRAZOLE
     Dosage: DISCONTINUED
     Route: 065
  29. PANTOPRAZOLE [Concomitant]
     Active Substance: PANTOPRAZOLE SODIUM
  30. ACTEMRA [Suspect]
     Active Substance: TOCILIZUMAB
     Indication: RHEUMATOID ARTHRITIS
     Route: 058
     Dates: start: 20150216
  31. ACTEMRA [Suspect]
     Active Substance: TOCILIZUMAB
     Route: 058
     Dates: start: 20150223
  32. AMITRIPTYLINE [Concomitant]
     Active Substance: AMITRIPTYLINE
  33. ACTEMRA [Suspect]
     Active Substance: TOCILIZUMAB
     Route: 058
     Dates: start: 20150309
  34. ACTEMRA [Suspect]
     Active Substance: TOCILIZUMAB
     Route: 058
     Dates: start: 20151104
  35. CALCIUM CARBONATE. [Concomitant]
     Active Substance: CALCIUM CARBONATE
  36. FERROUS GLUCONATE [Concomitant]
     Active Substance: FERROUS GLUCONATE
  37. ONDANSETRON [Concomitant]
     Active Substance: ONDANSETRON
  38. DICETEL [Concomitant]
     Active Substance: PINAVERIUM BROMIDE

REACTIONS (29)
  - Urine bilirubin increased [Unknown]
  - Sinusitis [Recovered/Resolved]
  - Osteoarthritis [Recovering/Resolving]
  - Nephrolithiasis [Unknown]
  - Perinephric collection [Unknown]
  - Hiatus hernia [Unknown]
  - Hip arthroplasty [Unknown]
  - Glomerular filtration rate decreased [Unknown]
  - Umbilical hernia [Unknown]
  - Haemorrhage [Recovered/Resolved]
  - Hypotension [Unknown]
  - Device related infection [Unknown]
  - Drug dose omission [Unknown]
  - Hip fracture [Unknown]
  - Haematoma [Recovered/Resolved]
  - Hepatic enzyme increased [Recovered/Resolved]
  - Hydronephrosis [Unknown]
  - Atelectasis [Unknown]
  - Renal cyst [Unknown]
  - Diarrhoea [Not Recovered/Not Resolved]
  - Decubitus ulcer [Unknown]
  - Neuropathy peripheral [Not Recovered/Not Resolved]
  - Lung consolidation [Unknown]
  - Mean cell haemoglobin concentration decreased [Unknown]
  - Urosepsis [Recovered/Resolved]
  - Pleural effusion [Unknown]
  - Red cell distribution width increased [Unknown]
  - Haemorrhage [Unknown]
  - Deep vein thrombosis [Unknown]

NARRATIVE: CASE EVENT DATE: 201202
